FAERS Safety Report 11635974 (Version 1)
Quarter: 2015Q4

REPORT INFORMATION
  Report Type: Spontaneous
  Country: US (occurrence: None)
  Receive Date: 20151015
  Receipt Date: 20151015
  Transmission Date: 20160304
  Serious: Yes (Hospitalization)
  Sender: FDA-Public Use
  Company Number: None

PATIENT
  Age: 8 Year
  Sex: Female
  Weight: 37.9 kg

DRUGS (6)
  1. ETOPOSIDE (VP-16) [Suspect]
     Active Substance: ETOPOSIDE
     Dates: end: 20150929
  2. VINCRISTINE SULFATE. [Suspect]
     Active Substance: VINCRISTINE SULFATE
     Dates: end: 20150911
  3. CYCLOPHOSPHAMIDE. [Suspect]
     Active Substance: CYCLOPHOSPHAMIDE
     Dates: end: 20150915
  4. DEXAMETHASONE. [Suspect]
     Active Substance: DEXAMETHASONE
     Dates: end: 20150915
  5. METHOTREXATE [Suspect]
     Active Substance: METHOTREXATE
     Dates: end: 20150919
  6. ONCASPAR [Suspect]
     Active Substance: PEGASPARGASE
     Dates: end: 20150920

REACTIONS (3)
  - Oral pain [None]
  - Pyrexia [None]
  - Neutrophil count decreased [None]

NARRATIVE: CASE EVENT DATE: 20151008
